FAERS Safety Report 19642453 (Version 2)
Quarter: 2021Q3

REPORT INFORMATION
  Report Type: Report from Study
  Country: US (occurrence: US)
  Receive Date: 20210730
  Receipt Date: 20210806
  Transmission Date: 20211014
  Serious: Yes (Hospitalization, Other)
  Sender: FDA-Public Use
  Company Number: US-ASTRAZENECA-2021A643886

PATIENT
  Age: 13426 Day
  Sex: Female

DRUGS (1)
  1. BRILINTA [Suspect]
     Active Substance: TICAGRELOR
     Indication: STENT PLACEMENT
     Route: 048
     Dates: start: 20210707

REACTIONS (9)
  - Blood pressure abnormal [Unknown]
  - Blood disorder [Unknown]
  - Syncope [Recovered/Resolved]
  - Dysstasia [Recovered/Resolved]
  - Blood count abnormal [Unknown]
  - Fall [Unknown]
  - Haemorrhage [Unknown]
  - Heavy menstrual bleeding [Recovered/Resolved]
  - Gait disturbance [Recovered/Resolved]

NARRATIVE: CASE EVENT DATE: 20210721
